FAERS Safety Report 12378666 (Version 2)
Quarter: 2017Q3

REPORT INFORMATION
  Report Type: Spontaneous
  Country: US (occurrence: US)
  Receive Date: 20160517
  Receipt Date: 20170706
  Transmission Date: 20171127
  Serious: No
  Sender: FDA-Public Use
  Company Number: US-TAKEDA-2016MPI003973

PATIENT
  Sex: Female
  Weight: 86 kg

DRUGS (4)
  1. NINLARO [Suspect]
     Active Substance: IXAZOMIB
     Indication: PLASMA CELL MYELOMA
     Dosage: 3 MG, QD
     Route: 048
     Dates: start: 20110406, end: 20160411
  2. REVLIMID [Suspect]
     Active Substance: LENALIDOMIDE
     Indication: PRODUCT USED FOR UNKNOWN INDICATION
     Dosage: UNK
     Route: 065
  3. NINLARO [Suspect]
     Active Substance: IXAZOMIB
     Dosage: 2.3 MG, UNK
     Route: 048
     Dates: start: 20170525
  4. NINLARO [Suspect]
     Active Substance: IXAZOMIB
     Dosage: 2.3 MG, QD
     Route: 048
     Dates: start: 20170517

REACTIONS (3)
  - Chest discomfort [Unknown]
  - Constipation [Unknown]
  - Platelet count decreased [Unknown]
